FAERS Safety Report 7266063-3 (Version None)
Quarter: 2011Q1

REPORT INFORMATION
  Report Type: 
  Country: None (occurrence: None)
  Receive Date: 20110131
  Receipt Date: 20100823
  Transmission Date: 20110831
  Serious: Yes (Other)
  Sender: FDA-Public Use
  Company Number: US-ABBOTT-09P-163-0609358-00

PATIENT
  Sex: Male
  Weight: 64.468 kg

DRUGS (3)
  1. LUPRON DEPOT [Suspect]
     Indication: PROSTATE CANCER
     Route: 030
     Dates: start: 20091027, end: 20091027
  2. FLOMAX [Concomitant]
     Indication: DYSURIA
     Route: 048
     Dates: start: 20070101
  3. FLOMAX [Concomitant]
     Route: 048
     Dates: end: 20070101

REACTIONS (5)
  - URINE FLOW DECREASED [None]
  - URINARY TRACT OBSTRUCTION [None]
  - JOINT SWELLING [None]
  - BLADDER PAIN [None]
  - OEDEMA PERIPHERAL [None]
